FAERS Safety Report 9280289 (Version 1)
Quarter: 2012Q4

REPORT INFORMATION
  Report Type: Spontaneous
  Country: GB (occurrence: None)
  Receive Date: 20120919
  Receipt Date: 20120919
  Transmission Date: 20130627
  Serious: Yes (Disabling)
  Sender: FDA-Public Use
  Company Number: VAL_00843_2012

PATIENT
  Age: 72 Year
  Sex: Male

DRUGS (4)
  1. METOPROLOL (METOPROLOL-METOPROLOL TARTRATE) [Suspect]
     Indication: ATRIAL FIBRILLATION
     Dosage: (DF)
     Route: 048
     Dates: start: 201111
  2. BISOPROLOL (BISOPROLOL (NGX)) [Suspect]
     Indication: ATRIAL FIBRILLATION
     Dates: start: 20120704
  3. DILTIAZEM [Concomitant]
  4. WARFARIN [Concomitant]

REACTIONS (2)
  - Fatigue [None]
  - Asthenia [None]
